FAERS Safety Report 5825602-7 (Version None)
Quarter: 2008Q3

REPORT INFORMATION
  Report Type: 
  Country: None (occurrence: None)
  Receive Date: 20080729
  Receipt Date: 20080724
  Transmission Date: 20090109
  Serious: Yes (Other)
  Sender: FDA-Public Use
  Company Number: A0739224A

PATIENT
  Sex: Male

DRUGS (9)
  1. LAMICTAL [Suspect]
     Indication: BIPOLAR DISORDER
     Dosage: 300MG VARIABLE DOSE
     Route: 048
     Dates: start: 20080301
  2. WELLBUTRIN XL [Suspect]
     Indication: DEPRESSION
     Dosage: 450MG PER DAY
     Route: 048
     Dates: start: 20070701
  3. DORYX [Concomitant]
  4. FISH OILS [Concomitant]
  5. ASCORBIC ACID [Concomitant]
  6. VITAMIN B COMPLEX CAP [Concomitant]
  7. NIACIN [Concomitant]
  8. GAVISON [Concomitant]
  9. ANTI-FUNGAL NAIL LAQUER [Concomitant]

REACTIONS (8)
  - ACNE [None]
  - APHASIA [None]
  - EYE PAIN [None]
  - INSOMNIA [None]
  - NERVOUSNESS [None]
  - RASH [None]
  - VISION BLURRED [None]
  - WEIGHT DECREASED [None]
